FAERS Safety Report 8928887 (Version 2)
Quarter: 2013Q1

REPORT INFORMATION
  Report Type: Spontaneous
  Country: IT (occurrence: IT)
  Receive Date: 20121128
  Receipt Date: 20130313
  Transmission Date: 20140127
  Serious: Yes (Other)
  Sender: FDA-Public Use
  Company Number: IT-BRISTOL-MYERS SQUIBB COMPANY-17140922

PATIENT
  Age: 88 Year
  Sex: Female

DRUGS (7)
  1. COUMADIN TABS 5 MG [Suspect]
     Indication: ATRIAL FIBRILLATION
     Route: 048
     Dates: start: 20061001, end: 20120802
  2. KANRENOL [Concomitant]
     Dosage: KANRENOL 100 M TABLETS
     Route: 048
  3. ADALAT [Concomitant]
     Dosage: TABS
  4. LANSOX [Concomitant]
     Dosage: TABS
  5. CARDICOR [Concomitant]
     Dosage: TABS
  6. CRESTOR [Concomitant]
     Dosage: TABS
  7. LASIX [Concomitant]
     Dosage: LASIX 25 MG TABLETS

REACTIONS (1)
  - Atrial fibrillation [Recovering/Resolving]
